FAERS Safety Report 5593876-6 (Version None)
Quarter: 2007Q4

REPORT INFORMATION
  Report Type: 
  Country: None (occurrence: None)
  Receive Date: 20071218
  Receipt Date: 20070507
  Transmission Date: 20080405
  Serious: Yes (Hospitalization, Other)
  Sender: FDA-Public Use
  Company Number: 2007036560

PATIENT
  Age: 76 Year
  Sex: Male
  Weight: 97.5 kg

DRUGS (1)
  1. BEXTRA [Suspect]
     Indication: ARTHRITIS
     Dosage: (10 AND 20MG TWICE A DAY)

REACTIONS (1)
  - MYOCARDIAL INFARCTION [None]
